FAERS Safety Report 6957354-1 (Version None)
Quarter: 2010Q3

REPORT INFORMATION
  Report Type: 
  Country: None (occurrence: None)
  Receive Date: 20100831
  Receipt Date: 20100817
  Transmission Date: 20110219
  Serious: Yes (Other)
  Sender: FDA-Public Use
  Company Number: GB-RANBAXY-2010RR-37598

PATIENT
  Age: 38 Year
  Sex: Female

DRUGS (3)
  1. ISOTRETINOIN [Suspect]
     Indication: ACNE
     Dosage: 65 MG, QD
     Route: 048
     Dates: start: 20100227, end: 20100420
  2. AMIAS [Concomitant]
     Dosage: 8 MG, UNK
  3. CITALOPRAM [Concomitant]
     Dosage: 40 MG, UNK
     Route: 048

REACTIONS (1)
  - PREGNANCY [None]
